FAERS Safety Report 4523114-4 (Version None)
Quarter: 2004Q4

REPORT INFORMATION
  Report Type: 
  Country: None (occurrence: None)
  Receive Date: 20041208
  Receipt Date: 20041127
  Transmission Date: 20050328
  Serious: Yes (Disabling)
  Sender: FDA-Public Use
  Company Number: 2004-11-1603

PATIENT
  Sex: Male

DRUGS (1)
  1. GARASONE           (GENTAMICIN SULFATE/BETAMETHASONE SOD PHOSPOTIC) [Suspect]
     Indication: POSTOPERATIVE ANALGESIA
     Dosage: FEW DROPS AD OTIC
     Dates: start: 20000301

REACTIONS (3)
  - BALANCE DISORDER [None]
  - DIZZINESS [None]
  - IMPAIRED WORK ABILITY [None]
